FAERS Safety Report 5929925-2 (Version None)
Quarter: 2008Q4

REPORT INFORMATION
  Report Type: 
  Country: None (occurrence: None)
  Receive Date: 20081024
  Receipt Date: 20081010
  Transmission Date: 20090506
  Serious: Yes (Other)
  Sender: FDA-Public Use
  Company Number: JP-GENENTECH-263631

PATIENT

DRUGS (4)
  1. AVASTIN [Suspect]
     Indication: LARGE INTESTINE CARCINOMA
     Dosage: 5 MG/KG, Q2W
     Route: 041
  2. FLUOROURACIL [Concomitant]
     Indication: LARGE INTESTINE CARCINOMA
  3. ELPLAT [Concomitant]
     Indication: LARGE INTESTINE CARCINOMA
  4. LEVOLEUCOVORIN CALCIUM [Concomitant]
     Indication: LARGE INTESTINE CARCINOMA

REACTIONS (1)
  - GENERALISED ERYTHEMA [None]
